FAERS Safety Report 5995159-9 (Version None)
Quarter: 2008Q4

REPORT INFORMATION
  Report Type: 
  Country: None (occurrence: None)
  Receive Date: 20081210
  Receipt Date: 20081126
  Transmission Date: 20090506
  Serious: Yes (Hospitalization)
  Sender: FDA-Public Use
  Company Number: 1000003038

PATIENT
  Age: 90 Year
  Sex: Female

DRUGS (4)
  1. ESCITALOPRAM [Suspect]
     Indication: ANXIETY
     Dosage: 15 MG (15 MG, 1 IN 1 D), ORAL
     Route: 048
     Dates: start: 20081121, end: 20081124
  2. ESCITALOPRAM [Suspect]
     Indication: ANXIETY
     Dosage: 10 MG (10 MG, 1 IN 1 D), ORAL; 5 MG (5 MG, 1 IN 1 D) ORAL; 10 MG (10 MG, 1 IN 1D), ORAL
     Route: 048
     Dates: start: 20080801, end: 20080101
  3. ESCITALOPRAM [Suspect]
     Indication: ANXIETY
     Dosage: 10 MG (10 MG, 1 IN 1 D), ORAL; 5 MG (5 MG, 1 IN 1 D) ORAL; 10 MG (10 MG, 1 IN 1D), ORAL
     Route: 048
     Dates: start: 20080101, end: 20081120
  4. ESCITALOPRAM [Suspect]
     Indication: ANXIETY
     Dosage: 10 MG (10 MG, 1 IN 1 D), ORAL; 5 MG (5 MG, 1 IN 1 D) ORAL; 10 MG (10 MG, 1 IN 1D), ORAL
     Route: 048
     Dates: start: 20081125

REACTIONS (2)
  - BLOOD PRESSURE INCREASED [None]
  - PULMONARY OEDEMA [None]
